FAERS Safety Report 6439919-9 (Version None)
Quarter: 2009Q4

REPORT INFORMATION
  Report Type: 
  Country: None (occurrence: None)
  Receive Date: 20091113
  Receipt Date: 20091103
  Transmission Date: 20100525
  Serious: Yes (Other)
  Sender: FDA-Public Use
  Company Number: BR-PFIZER INC-2009214762

PATIENT
  Age: 26 Year
  Sex: Female

DRUGS (1)
  1. DOSTINEX [Suspect]
     Indication: PITUITARY TUMOUR BENIGN
     Dosage: 1 MG, WEEKLY
     Route: 048
     Dates: start: 20060101

REACTIONS (1)
  - NEOPLASM PROGRESSION [None]
